FAERS Safety Report 9116212 (Version 2)
Quarter: 2013Q1

REPORT INFORMATION
  Report Type: Spontaneous
  Country: DE (occurrence: ES)
  Receive Date: 20130225
  Receipt Date: 20130327
  Transmission Date: 20140127
  Serious: Yes (Hospitalization, Other)
  Sender: FDA-Public Use
  Company Number: ES-FRI-1000042869

PATIENT
  Age: 75 Year
  Sex: Male
  Weight: 100 kg

DRUGS (7)
  1. ROFLUMILAST [Suspect]
     Indication: CHRONIC OBSTRUCTIVE PULMONARY DISEASE
     Dosage: 1000 MCG
     Route: 048
     Dates: start: 201211
  2. SERETIDE [Concomitant]
     Indication: CHRONIC OBSTRUCTIVE PULMONARY DISEASE
     Dates: start: 2010
  3. SPIRIVA [Concomitant]
     Indication: CHRONIC OBSTRUCTIVE PULMONARY DISEASE
     Route: 055
     Dates: start: 2010
  4. ATROVENT [Concomitant]
     Indication: CHRONIC OBSTRUCTIVE PULMONARY DISEASE
     Route: 055
  5. CARDISER RETARD [Concomitant]
     Route: 048
  6. ATORVASTATIN [Concomitant]
     Route: 048
  7. VALSARTAN [Concomitant]
     Route: 048

REACTIONS (2)
  - Haemoptysis [Recovered/Resolved]
  - Medication error [Unknown]
